FAERS Safety Report 8112081-2 (Version None)
Quarter: 2012Q1

REPORT INFORMATION
  Report Type: 
  Country: None (occurrence: None)
  Receive Date: 20120203
  Receipt Date: 20120128
  Transmission Date: 20120608
  Serious: Yes (Hospitalization, Other)
  Sender: FDA-Public Use
  Company Number: IN-PFIZER INC-2012003038

PATIENT
  Age: 58 Year
  Sex: Male

DRUGS (1)
  1. SUTENT [Suspect]
     Indication: METASTATIC RENAL CELL CARCINOMA
     Dosage: 37.5 MG, 1X/DAY
     Route: 048
     Dates: start: 20111011, end: 20111218

REACTIONS (9)
  - SIGHT DISABILITY [None]
  - DYSPNOEA [None]
  - ENCEPHALOPATHY [None]
  - DELIRIUM [None]
  - HYPERTENSION [None]
  - HAEMOGLOBIN DECREASED [None]
  - PYREXIA [None]
  - PNEUMONIA [None]
  - MOUTH ULCERATION [None]
